FAERS Safety Report 13521586 (Version 2)
Quarter: 2017Q3

REPORT INFORMATION
  Report Type: Report from Study
  Country: US (occurrence: US)
  Receive Date: 20170508
  Receipt Date: 20170809
  Transmission Date: 20171127
  Serious: Yes (Hospitalization, Other)
  Sender: FDA-Public Use
  Company Number: US-ENDO PHARMACEUTICALS INC-2017-002687

PATIENT
  Age: 47 Year
  Sex: Male
  Weight: 90.7 kg

DRUGS (2)
  1. XIAFLEX [Suspect]
     Active Substance: COLLAGENASE CLOSTRIDIUM HISTOLYTICUM
     Indication: PEYRONIE^S DISEASE
     Dosage: UNK MG, INJECTION 2
     Route: 026
     Dates: start: 20170306, end: 20170306
  2. XIAFLEX [Suspect]
     Active Substance: COLLAGENASE CLOSTRIDIUM HISTOLYTICUM
     Dosage: INJECTION ONE
     Route: 026
     Dates: start: 201703

REACTIONS (6)
  - Penile pain [Recovered/Resolved]
  - Wrong technique in product usage process [Recovered/Resolved]
  - Penile adhesion [Recovered/Resolved]
  - Impaired work ability [Recovered/Resolved]
  - Penile haemorrhage [Recovered/Resolved]
  - Urethral injury [Recovered/Resolved]

NARRATIVE: CASE EVENT DATE: 201703
